FAERS Safety Report 25375187 (Version 1)
Quarter: 2025Q2

REPORT INFORMATION
  Report Type: Spontaneous
  Country: US (occurrence: None)
  Receive Date: 20250529
  Receipt Date: 20250529
  Transmission Date: 20250716
  Serious: Yes (Other)
  Sender: INCYTE
  Company Number: US-INCYTE CORPORATION-2025IN005770

PATIENT
  Age: 89 Year

DRUGS (1)
  1. JAKAFI [Suspect]
     Active Substance: RUXOLITINIB
     Indication: Product used for unknown indication
     Dosage: 20 MILLIGRAM, BID

REACTIONS (5)
  - Atrial fibrillation [Unknown]
  - Dysuria [Unknown]
  - Chromaturia [Unknown]
  - Pain [Unknown]
  - Fatigue [Unknown]
